FAERS Safety Report 13983465 (Version 3)
Quarter: 2018Q3

REPORT INFORMATION
  Report Type: Spontaneous
  Country: US (occurrence: US)
  Receive Date: 20170918
  Receipt Date: 20180706
  Transmission Date: 20181010
  Serious: No
  Sender: FDA-Public Use
  Company Number: US-RECKITT BENCKISER HEALTHCARE INT LIMITED-RB-89310-2017

PATIENT
  Age: 33 Year
  Sex: Female

DRUGS (1)
  1. MUCINEX [Suspect]
     Active Substance: GUAIFENESIN
     Indication: PRODUCT USED FOR UNKNOWN INDICATION
     Dosage: UNK
     Route: 065
     Dates: start: 20170430, end: 20170430

REACTIONS (3)
  - Headache [Unknown]
  - Expired product administered [Unknown]
  - Dizziness [Unknown]

NARRATIVE: CASE EVENT DATE: 20170430
